FAERS Safety Report 8019865-X (Version None)
Quarter: 2012Q1

REPORT INFORMATION
  Report Type: 
  Country: None (occurrence: None)
  Receive Date: 20120103
  Receipt Date: 20111229
  Transmission Date: 20120608
  Serious: Yes (Other)
  Sender: FDA-Public Use
  Company Number: AU-BAYER-2012-000168

PATIENT
  Sex: Female

DRUGS (1)
  1. ULTRAVIST 150 [Suspect]
     Indication: COMPUTERISED TOMOGRAM
     Dosage: UNK
     Dates: start: 20111229, end: 20111229

REACTIONS (2)
  - SNEEZING [None]
  - THROAT IRRITATION [None]
